FAERS Safety Report 9525434 (Version 46)
Quarter: 2017Q2

REPORT INFORMATION
  Report Type: Report from Study
  Country: CA (occurrence: CA)
  Receive Date: 20130916
  Receipt Date: 20170621
  Transmission Date: 20170830
  Serious: Yes (Hospitalization, Other)
  Sender: FDA-Public Use
  Company Number: CA-ROCHE-1249987

PATIENT
  Age: 69 Year
  Sex: Female
  Weight: 92 kg

DRUGS (15)
  1. CELEXA [Concomitant]
     Active Substance: CITALOPRAM HYDROBROMIDE
  2. ACTEMRA [Suspect]
     Active Substance: TOCILIZUMAB
     Route: 042
     Dates: start: 20140602
  3. ACTEMRA [Suspect]
     Active Substance: TOCILIZUMAB
     Indication: RHEUMATOID ARTHRITIS
     Route: 042
     Dates: start: 20130715
  4. ACTEMRA [Suspect]
     Active Substance: TOCILIZUMAB
     Route: 042
     Dates: start: 20160224
  5. ACTEMRA [Suspect]
     Active Substance: TOCILIZUMAB
     Route: 042
     Dates: start: 20160323, end: 20160523
  6. PLAQUENIL [Concomitant]
     Active Substance: HYDROXYCHLOROQUINE SULFATE
  7. MOBICOX [Concomitant]
     Active Substance: MELOXICAM
  8. DIDROCAL [Suspect]
     Active Substance: CALCIUM CARBONATE\ETIDRONATE DISODIUM
     Indication: PRODUCT USED FOR UNKNOWN INDICATION
     Route: 065
  9. ATROVENT [Concomitant]
     Active Substance: IPRATROPIUM BROMIDE
  10. PREDNISONE. [Suspect]
     Active Substance: PREDNISONE
     Indication: PRODUCT USED FOR UNKNOWN INDICATION
     Route: 065
     Dates: end: 201602
  11. NEXIUM [Concomitant]
     Active Substance: ESOMEPRAZOLE MAGNESIUM
  12. ACTEMRA [Suspect]
     Active Substance: TOCILIZUMAB
     Route: 042
     Dates: start: 20141118
  13. AMITRIPTYLINE [Concomitant]
     Active Substance: AMITRIPTYLINE
  14. VENTOLIN [Concomitant]
     Active Substance: ALBUTEROL SULFATE
  15. FLOVENT [Concomitant]
     Active Substance: FLUTICASONE PROPIONATE

REACTIONS (56)
  - Drug ineffective [Unknown]
  - Heart rate decreased [Unknown]
  - Constipation [Unknown]
  - Oxygen saturation decreased [Unknown]
  - Upper limb fracture [Not Recovered/Not Resolved]
  - Body temperature decreased [Unknown]
  - Asthenia [Not Recovered/Not Resolved]
  - Arthralgia [Not Recovered/Not Resolved]
  - Respiratory rate decreased [Unknown]
  - Hyperkeratosis [Not Recovered/Not Resolved]
  - Injection site haemorrhage [Unknown]
  - Dyspnoea [Unknown]
  - Device breakage [Unknown]
  - Contusion [Recovering/Resolving]
  - Pain in extremity [Recovered/Resolved]
  - Limb injury [Unknown]
  - Fall [Unknown]
  - Scratch [Recovered/Resolved]
  - Loose tooth [Unknown]
  - Tooth disorder [Unknown]
  - Cyst [Recovering/Resolving]
  - Myalgia [Unknown]
  - Laceration [Recovering/Resolving]
  - Fall [Unknown]
  - Infection [Not Recovered/Not Resolved]
  - Femur fracture [Unknown]
  - Infusion related reaction [Recovered/Resolved]
  - Cardiac failure congestive [Not Recovered/Not Resolved]
  - Clavicle fracture [Not Recovered/Not Resolved]
  - Rheumatoid arthritis [Not Recovered/Not Resolved]
  - Drug ineffective [Unknown]
  - Incision site infection [Recovered/Resolved]
  - Hypertension [Unknown]
  - Diarrhoea [Unknown]
  - Localised infection [Not Recovered/Not Resolved]
  - Contusion [Unknown]
  - Weight decreased [Recovering/Resolving]
  - Pneumonia [Not Recovered/Not Resolved]
  - Skin abrasion [Unknown]
  - Rib fracture [Not Recovered/Not Resolved]
  - Carpal tunnel syndrome [Not Recovered/Not Resolved]
  - Weight increased [Unknown]
  - Wound infection [Unknown]
  - Pain in extremity [Not Recovered/Not Resolved]
  - Head injury [Not Recovered/Not Resolved]
  - Stress [Unknown]
  - Erythema [Unknown]
  - Swelling [Unknown]
  - Chest discomfort [Unknown]
  - Cataract [Unknown]
  - Pain [Recovered/Resolved]
  - Cough [Recovered/Resolved]
  - Blood pressure increased [Unknown]
  - Respiratory rate increased [Unknown]
  - Oxygen saturation decreased [Unknown]
  - Rotator cuff syndrome [Not Recovered/Not Resolved]

NARRATIVE: CASE EVENT DATE: 20130715
